FAERS Safety Report 9825251 (Version 1)
Quarter: 2013Q4

REPORT INFORMATION
  Report Type: Spontaneous
  Country: US (occurrence: None)
  Receive Date: 20131028
  Receipt Date: 20131028
  Transmission Date: 20140711
  Serious: Yes (Other)
  Sender: FDA-Public Use
  Company Number: 2013US001962

PATIENT
  Age: 48 Year
  Sex: Female
  Weight: 62 kg

DRUGS (5)
  1. ICLUSIG (PONATINIB) TABLET, 45MG [Suspect]
     Indication: CHRONIC MYELOID LEUKAEMIA
     Dosage: 45 MG, QD, ORAL
     Route: 048
     Dates: start: 20130619, end: 20130722
  2. MEDROL (METHYLPREDNISOLONE) [Concomitant]
  3. NAPROSYN (NAPROXEN SODIUM) [Concomitant]
  4. ALLOPURINOL (ALLOPURINOL) [Concomitant]
  5. MARVELON (DESOGESTREL, ETHINYLESTRADIOL) [Concomitant]

REACTIONS (2)
  - Rash [None]
  - Weight decreased [None]
